FAERS Safety Report 9693823 (Version 8)
Quarter: 2016Q3

REPORT INFORMATION
  Report Type: Report from Study
  Country: MX (occurrence: MX)
  Receive Date: 20131118
  Receipt Date: 20160812
  Transmission Date: 20161109
  Serious: Yes (Other)
  Sender: FDA-Public Use
  Company Number: PHHY2013MX061975

PATIENT
  Age: 81 Year
  Sex: Female

DRUGS (16)
  1. DIOVAN [Suspect]
     Active Substance: VALSARTAN
     Dosage: 0.5 DF (320 MG) (8 MONTHS AGO APPROX)
     Route: 065
  2. OMEPRAZOLE. [Concomitant]
     Active Substance: OMEPRAZOLE
     Indication: PRODUCT USED FOR UNKNOWN INDICATION
     Route: 065
  3. DIOVAN [Suspect]
     Active Substance: VALSARTAN
     Indication: HYPERTENSION
     Dosage: 1 DF, QD (320 MG)
     Route: 048
     Dates: start: 2012
  4. ADALAT CC [Concomitant]
     Active Substance: NIFEDIPINE
     Indication: PRODUCT USED FOR UNKNOWN INDICATION
     Route: 065
  5. DIOVAN [Suspect]
     Active Substance: VALSARTAN
     Dosage: 1 DF, QD (160 MG)
     Route: 065
  6. ADALAT [Concomitant]
     Active Substance: NIFEDIPINE
     Indication: HYPERTENSION
     Dosage: 1 DF, QD
     Route: 065
     Dates: start: 2012
  7. LASIX [Concomitant]
     Active Substance: FUROSEMIDE
     Indication: DIURETIC THERAPY
     Dosage: 0.5 DF, QD
     Route: 065
     Dates: start: 2011
  8. RIVOTRIL [Concomitant]
     Active Substance: CLONAZEPAM
     Indication: INSOMNIA
     Dosage: 1 DF, QD
     Route: 065
     Dates: start: 2004
  9. NOVOTIRAL [Concomitant]
     Active Substance: LEVOTHYROXINE
     Indication: HYPOTHYROIDISM
     Dosage: 0.5 DF, QD
     Route: 065
  10. DIOVAN [Suspect]
     Active Substance: VALSARTAN
     Indication: BLOOD PRESSURE INCREASED
     Dosage: 0.5 DF (320 MG), BID (0.5 TABLET IN THE MORNING AND 0.5 TABLET AT NIGHT)
     Route: 048
  11. DIOVAN [Suspect]
     Active Substance: VALSARTAN
     Dosage: 0.5 DF, QD (320 MG, HALF TABLET)
     Route: 048
     Dates: end: 201605
  12. ROSUVASTATIN. [Concomitant]
     Active Substance: ROSUVASTATIN
     Indication: BLOOD CHOLESTEROL ABNORMAL
     Route: 065
  13. ALDACTONE A [Concomitant]
     Active Substance: SPIRONOLACTONE
     Indication: PRODUCT USED FOR UNKNOWN INDICATION
     Route: 065
  14. COLECALCIFEROL [Concomitant]
     Active Substance: CHOLECALCIFEROL
     Indication: PRODUCT USED FOR UNKNOWN INDICATION
     Route: 065
  15. ADALAT [Concomitant]
     Active Substance: NIFEDIPINE
     Dosage: 0.5 DF, QD (EVERY NIGHT)
     Route: 065
  16. CRESTOR [Concomitant]
     Active Substance: ROSUVASTATIN CALCIUM
     Indication: BLOOD CHOLESTEROL ABNORMAL
     Dosage: 1 DF, QD
     Route: 065
     Dates: start: 2009

REACTIONS (11)
  - Wrong technique in product usage process [Recovered/Resolved]
  - Influenza [Not Recovered/Not Resolved]
  - Wrong technique in product usage process [Not Recovered/Not Resolved]
  - Blood pressure decreased [Recovered/Resolved]
  - Hip fracture [Not Recovered/Not Resolved]
  - Fall [Recovered/Resolved]
  - Oropharyngeal pain [Not Recovered/Not Resolved]
  - Oedema peripheral [Recovered/Resolved]
  - Catarrh [Not Recovered/Not Resolved]
  - Femur fracture [Recovered/Resolved]
  - Fall [Not Recovered/Not Resolved]

NARRATIVE: CASE EVENT DATE: 201307
